FAERS Safety Report 25542692 (Version 1)
Quarter: 2025Q3

REPORT INFORMATION
  Report Type: Spontaneous
  Country: GB (occurrence: GB)
  Receive Date: 20250711
  Receipt Date: 20250711
  Transmission Date: 20251021
  Serious: Yes (Other)
  Sender: TEVA
  Company Number: None

PATIENT
  Age: 56 Year
  Sex: Male
  Weight: 84 kg

DRUGS (1)
  1. ROSUVASTATIN [Suspect]
     Active Substance: ROSUVASTATIN
     Indication: Prophylaxis
     Route: 065
     Dates: start: 20240201

REACTIONS (1)
  - Petit mal epilepsy [Recovered/Resolved]

NARRATIVE: CASE EVENT DATE: 20250429
